FAERS Safety Report 21731381 (Version 2)
Quarter: 2023Q1

REPORT INFORMATION
  Report Type: Spontaneous
  Country: US (occurrence: US)
  Receive Date: 20221215
  Receipt Date: 20230102
  Transmission Date: 20230418
  Serious: No
  Sender: FDA-Public Use
  Company Number: US-BRISTOL-MYERS SQUIBB COMPANY-2022-153791

PATIENT
  Age: 63 Year

DRUGS (2)
  1. SOTYKTU [Suspect]
     Active Substance: DEUCRAVACITINIB
     Indication: Product used for unknown indication
  2. SOTYKTU [Suspect]
     Active Substance: DEUCRAVACITINIB
     Indication: Psoriasis
     Route: 048
     Dates: start: 20221208, end: 20221215

REACTIONS (3)
  - Herpes simplex [Recovered/Resolved]
  - Oropharyngeal pain [Unknown]
  - Oral purpura [Unknown]

NARRATIVE: CASE EVENT DATE: 20221212
